FAERS Safety Report 23823290 (Version 1)
Quarter: 2024Q2

REPORT INFORMATION
  Report Type: Spontaneous
  Country: CA (occurrence: CA)
  Receive Date: 20240507
  Receipt Date: 20240507
  Transmission Date: 20240716
  Serious: Yes (Other)
  Sender: FDA-Public Use
  Company Number: CA-SANDOZ-SDZ2023CA055173

PATIENT
  Age: 82 Year
  Sex: Female

DRUGS (35)
  1. DICLOFENAC [Suspect]
     Active Substance: DICLOFENAC
     Indication: Pain
     Dosage: UNK
     Route: 065
  2. TEMAZEPAM [Concomitant]
     Active Substance: TEMAZEPAM
     Indication: Product used for unknown indication
     Dosage: UNK
     Route: 065
  3. MYOCHRYSINE [Concomitant]
     Active Substance: GOLD SODIUM THIOMALATE
     Indication: Product used for unknown indication
     Dosage: UNK
     Route: 030
  4. METHOTREXATE [Concomitant]
     Active Substance: METHOTREXATE
     Indication: Product used for unknown indication
     Dosage: UNK
     Route: 065
  5. HYDROXYCHLOROQUINE [Concomitant]
     Active Substance: HYDROXYCHLOROQUINE
     Indication: Product used for unknown indication
     Dosage: UNK
     Route: 065
  6. LIPITOR [Concomitant]
     Active Substance: ATORVASTATIN CALCIUM
     Indication: Product used for unknown indication
     Dosage: UNK
     Route: 065
  7. TYLENOL [Concomitant]
     Active Substance: ACETAMINOPHEN
     Indication: Pain
     Dosage: UNK
     Route: 065
  8. ATENOLOL [Suspect]
     Active Substance: ATENOLOL
     Indication: Product used for unknown indication
     Dosage: UNK
     Route: 065
  9. BETAMETHASONE DIPROPIONATE\CALCIPOTRIENE MONOHYDRATE [Concomitant]
     Active Substance: BETAMETHASONE DIPROPIONATE\CALCIPOTRIENE MONOHYDRATE
     Indication: Product used for unknown indication
     Dosage: UNK
     Route: 065
  10. CALCIUM CARBONATE [Concomitant]
     Active Substance: CALCIUM CARBONATE
     Indication: Product used for unknown indication
     Dosage: UNK
     Route: 065
  11. METFORMIN [Suspect]
     Active Substance: METFORMIN HYDROCHLORIDE
     Indication: Product used for unknown indication
     Dosage: UNK
     Route: 065
  12. ATORVASTATIN CALCIUM [Suspect]
     Active Substance: ATORVASTATIN CALCIUM
     Indication: Product used for unknown indication
  13. LANSOPRAZOLE [Suspect]
     Active Substance: LANSOPRAZOLE
     Indication: Product used for unknown indication
  14. RANITIDINE [Suspect]
     Active Substance: RANITIDINE
     Indication: Product used for unknown indication
  15. CITALOPRAM [Suspect]
     Active Substance: CITALOPRAM\CITALOPRAM HYDROBROMIDE
     Indication: Product used for unknown indication
  16. CALCIUM [Concomitant]
     Active Substance: CALCIUM
  17. CELEBREX [Concomitant]
     Active Substance: CELECOXIB
  18. FUROSEMIDE (FUROSEMIDE SODIUM) [Concomitant]
  19. GABAPENTIN [Concomitant]
     Active Substance: GABAPENTIN
  20. GINSENG (PANAX GINSENG) [Concomitant]
  21. IRON (FERROUS SULFATE) [Concomitant]
  22. LASIX [Concomitant]
     Active Substance: FUROSEMIDE
  23. LORATADINE [Concomitant]
     Active Substance: LORATADINE
  24. MAGNESIUM (MAGNESIUM CARBONATE) [Concomitant]
  25. METOPROLOL TARTRATE [Concomitant]
     Active Substance: METOPROLOL TARTRATE
  26. OMEGA-3 FATTY ACIDS [Concomitant]
     Active Substance: OMEGA-3 FATTY ACIDS
  27. CALTRATE [Concomitant]
     Active Substance: CALCIUM CARBONATE
  28. ACETAMINOPHEN AND CODEINE [Concomitant]
     Active Substance: ACETAMINOPHEN\CODEINE PHOSPHATE
  29. ASPIRIN [Concomitant]
     Active Substance: ASPIRIN
  30. ATENOLOL [Concomitant]
     Active Substance: ATENOLOL
  31. FLUTICASONE FUROATE [Concomitant]
     Active Substance: FLUTICASONE FUROATE
  32. PANTOPRAZOLE SODIUM [Concomitant]
     Active Substance: PANTOPRAZOLE SODIUM
  33. TOVIAZ [Concomitant]
     Active Substance: FESOTERODINE FUMARATE
  34. XANTOFYL PALMITATE (XANTOFYL PALMITATE) [Concomitant]
  35. ZINC [Concomitant]
     Active Substance: PYRITHIONE ZINC\ZINC\ZINC CHLORIDE

REACTIONS (41)
  - Diabetes mellitus [Unknown]
  - Finger deformity [Unknown]
  - Arthralgia [Unknown]
  - Body height decreased [Unknown]
  - Fall [Unknown]
  - Overweight [Unknown]
  - Hypertension [Unknown]
  - Purpura [Unknown]
  - Hepatic enzyme increased [Unknown]
  - Musculoskeletal stiffness [Unknown]
  - Gait disturbance [Unknown]
  - Psoriatic arthropathy [Unknown]
  - Osteoporosis [Unknown]
  - Nephropathy [Unknown]
  - Arthropathy [Unknown]
  - Synovitis [Unknown]
  - Bone density decreased [Unknown]
  - Movement disorder [Unknown]
  - Fibrosis [Unknown]
  - Hepatic steatosis [Unknown]
  - Sciatica [Unknown]
  - Skin disorder [Unknown]
  - Joint range of motion decreased [Unknown]
  - Dyslipidaemia [Unknown]
  - Osteoarthritis [Unknown]
  - Psoriasis [Unknown]
  - Limb injury [Unknown]
  - Renal failure [Unknown]
  - Chest pain [Unknown]
  - Arthritis [Unknown]
  - Musculoskeletal pain [Unknown]
  - Back pain [Unknown]
  - Carbuncle [Unknown]
  - Asthenia [Unknown]
  - Dysstasia [Unknown]
  - Liver disorder [Unknown]
  - Hypothalamo-pituitary disorder [Unknown]
  - Cholelithiasis [Unknown]
  - Monoclonal immunoglobulin present [Unknown]
  - Renal cyst [Unknown]
  - Joint stiffness [Unknown]
